FAERS Safety Report 6656337-9 (Version None)
Quarter: 2010Q1

REPORT INFORMATION
  Report Type: 
  Country: None (occurrence: None)
  Receive Date: 20100329
  Receipt Date: 20100319
  Transmission Date: 20100710
  Serious: Yes (Other)
  Sender: FDA-Public Use
  Company Number: US-ABBOTT-10P-163-0633389-00

PATIENT
  Age: 17 Year
  Sex: Male

DRUGS (4)
  1. VICODIN [Suspect]
     Indication: TOOTH ABSCESS
     Dates: start: 20100201
  2. ADVIL LIQUI-GELS [Suspect]
     Indication: TOOTH ABSCESS
     Dosage: LIQUIGELS; 400-800 MILLIGRAMS
     Dates: start: 20100201
  3. DARVOCET [Suspect]
     Indication: TOOTH ABSCESS
     Dates: start: 20100201
  4. TYLENOL-500 [Suspect]
     Indication: TOOTH ABSCESS
     Dates: start: 20100201

REACTIONS (4)
  - ABDOMINAL PAIN UPPER [None]
  - HEPATITIS [None]
  - HYPERHIDROSIS [None]
  - VOMITING [None]
